FAERS Safety Report 5636214-2 (Version None)
Quarter: 2008Q1

REPORT INFORMATION
  Report Type: 
  Country: None (occurrence: None)
  Receive Date: 20080225
  Receipt Date: 20080213
  Transmission Date: 20080703
  Serious: Yes (Hospitalization)
  Sender: FDA-Public Use
  Company Number: CH-WYE-G01052108

PATIENT
  Age: 27 Year
  Sex: Female

DRUGS (6)
  1. EFFEXOR [Suspect]
     Indication: DEPRESSION
     Route: 048
  2. ELTROXIN [Concomitant]
     Indication: HYPOTHYROIDISM
     Route: 048
  3. XANAX [Suspect]
     Indication: DEPRESSION
     Route: 048
     Dates: end: 20070123
  4. QUETIAPINE FUMARATE [Suspect]
     Indication: SCHIZOPHRENIA
     Route: 048
  5. BELOC ZOK [Suspect]
     Indication: ESSENTIAL HYPERTENSION
     Dosage: UNKNOWN
     Route: 048
  6. SORTIS [Suspect]
     Indication: HYPERLIPIDAEMIA
     Route: 048
     Dates: end: 20070123

REACTIONS (2)
  - DRUG EXPOSURE DURING PREGNANCY [None]
  - FOETAL DISORDER [None]
